FAERS Safety Report 17740585 (Version 2)
Quarter: 2020Q2

REPORT INFORMATION
  Report Type: Spontaneous
  Country: DE (occurrence: DE)
  Receive Date: 20200504
  Receipt Date: 20200612
  Transmission Date: 20200714
  Serious: No
  Sender: FDA-Public Use
  Company Number: DE-JNJFOC-20200433176

PATIENT
  Age: 72 Year
  Sex: Female

DRUGS (1)
  1. DUROGESIC SMAT [Suspect]
     Active Substance: FENTANYL
     Indication: PRODUCT USED FOR UNKNOWN INDICATION
     Dosage: 12 MICROGRAM AND 50 MICROGRAM SINCE 4 YEARS; STRENGTH- 50 UG/HR
     Route: 062

REACTIONS (2)
  - Product adhesion issue [Unknown]
  - Underdose [Unknown]
